FAERS Safety Report 19656367 (Version 2)
Quarter: 2021Q3

REPORT INFORMATION
  Report Type: Spontaneous
  Country: IT (occurrence: IT)
  Receive Date: 20210804
  Receipt Date: 20210817
  Transmission Date: 20211014
  Serious: Yes (Hospitalization, Other)
  Sender: FDA-Public Use
  Company Number: IT-PFIZER INC-2021782281

PATIENT
  Age: 37 Year
  Sex: Female

DRUGS (2)
  1. PROGESTERONE. [Concomitant]
     Active Substance: PROGESTERONE
     Indication: HORMONE REPLACEMENT THERAPY
     Dosage: 200 MG
  2. ESTRADIOL. [Suspect]
     Active Substance: ESTRADIOL
     Indication: HORMONE REPLACEMENT THERAPY
     Dosage: ESTRADIOL 2 MG TABLET, FOUR TIMES/DAY: HIGH DOSE OF ESTRADIOL 8 MG (15 DAYS)

REACTIONS (4)
  - Embolic cerebral infarction [Recovered/Resolved]
  - Carotid artery dissection [Recovered/Resolved]
  - Ovarian hyperstimulation syndrome [Recovered/Resolved]
  - Balance disorder [Recovered/Resolved]
